FAERS Safety Report 11913859 (Version 1)
Quarter: 2016Q1

REPORT INFORMATION
  Report Type: Spontaneous
  Country: PT (occurrence: PT)
  Receive Date: 20160113
  Receipt Date: 20160113
  Transmission Date: 20160526
  Serious: Yes (Other)
  Sender: FDA-Public Use
  Company Number: PT-TEVA-624460ISR

PATIENT
  Sex: Female
  Weight: 48 kg

DRUGS (1)
  1. DIAZEPAM RATIOPHARM 10 MG COMPRIMIDOS [Suspect]
     Active Substance: DIAZEPAM
     Indication: ANXIOLYTIC THERAPY
     Dosage: 10 MILLIGRAM DAILY;
     Route: 048
     Dates: end: 20151104

REACTIONS (2)
  - Hypotonia [Recovered/Resolved]
  - Obstructive airways disorder [Recovered/Resolved]
